FAERS Safety Report 15888555 (Version 4)
Quarter: 2019Q3

REPORT INFORMATION
  Report Type: Report from Study
  Country: DE (occurrence: DE)
  Receive Date: 20190130
  Receipt Date: 20190823
  Transmission Date: 20191004
  Serious: Yes (Hospitalization)
  Sender: FDA-Public Use
  Company Number: DE-ROCHE-2214245

PATIENT
  Age: 55 Year
  Sex: Female
  Weight: 93 kg

DRUGS (9)
  1. OCREVUS [Suspect]
     Active Substance: OCRELIZUMAB
     Route: 042
     Dates: start: 20180920
  2. OCREVUS [Suspect]
     Active Substance: OCRELIZUMAB
     Indication: RELAPSING-REMITTING MULTIPLE SCLEROSIS
     Route: 042
     Dates: start: 20180830
  3. RESTEX [Concomitant]
     Active Substance: BENSERAZIDE\LEVODOPA
     Indication: RESTLESS LEGS SYNDROME
     Dosage: 100MG/25MG
     Route: 048
  4. PANTOZOL [Concomitant]
     Active Substance: PANTOPRAZOLE SODIUM
     Route: 048
     Dates: start: 20180830
  5. HISTAKUT [Concomitant]
     Route: 042
     Dates: start: 20180830
  6. SINGULAIR [Concomitant]
     Active Substance: MONTELUKAST SODIUM
     Indication: ASTHMA
     Dosage: 0-0-1
     Route: 048
     Dates: start: 201807, end: 201809
  7. PARACETAMOL [Concomitant]
     Active Substance: ACETAMINOPHEN
  8. OCREVUS [Suspect]
     Active Substance: OCRELIZUMAB
     Route: 042
     Dates: start: 20190313
  9. L-THYROXIN [LEVOTHYROXINE] [Concomitant]
     Active Substance: LEVOTHYROXINE SODIUM
     Indication: HYPOTHYROIDISM
     Dosage: 50UG/150UG
     Route: 048

REACTIONS (8)
  - Cholelithiasis [Recovered/Resolved]
  - Multiple sclerosis [Recovering/Resolving]
  - Blood immunoglobulin G decreased [Not Recovered/Not Resolved]
  - Paraesthesia oral [Recovered/Resolved]
  - Fatigue [Recovered/Resolved]
  - Lip swelling [Recovered/Resolved]
  - Viral pharyngitis [Recovering/Resolving]
  - Asthma [Recovered/Resolved]

NARRATIVE: CASE EVENT DATE: 20180907
